FAERS Safety Report 8496071-6 (Version None)
Quarter: 2012Q3

REPORT INFORMATION
  Report Type: 
  Country: None (occurrence: None)
  Receive Date: 20120709
  Receipt Date: 20120629
  Transmission Date: 20120928
  Serious: Yes (Other)
  Sender: FDA-Public Use
  Company Number: CN-ASTRAZENECA-2012SE39824

PATIENT
  Age: 38 Year
  Sex: Male

DRUGS (3)
  1. NEXIUM [Suspect]
     Route: 048
     Dates: start: 20120508
  2. TEPRENONE [Concomitant]
     Route: 048
  3. NEXIUM [Suspect]
     Route: 048
     Dates: end: 20120601

REACTIONS (6)
  - SOMNOLENCE [None]
  - DIZZINESS [None]
  - HAEMORRHAGIC EROSIVE GASTRITIS [None]
  - FATIGUE [None]
  - FEELING HOT [None]
  - SWELLING [None]
